FAERS Safety Report 20749801 (Version 2)
Quarter: 2022Q4

REPORT INFORMATION
  Report Type: Spontaneous
  Country: TR (occurrence: TR)
  Receive Date: 20220426
  Receipt Date: 20221004
  Transmission Date: 20230112
  Serious: Yes (Hospitalization, Other)
  Sender: FDA-Public Use
  Company Number: TR-BAYER-2022A059880

PATIENT
  Age: 42 Year
  Sex: Female

DRUGS (1)
  1. DIENOGEST\ESTRADIOL VALERATE [Suspect]
     Active Substance: DIENOGEST\ESTRADIOL VALERATE
     Indication: Contraception
     Dosage: UNK
     Route: 048
     Dates: start: 2021, end: 202201

REACTIONS (3)
  - Cerebral haemorrhage [None]
  - Cerebral thrombosis [None]
  - Coronary artery thrombosis [None]

NARRATIVE: CASE EVENT DATE: 20220101
